FAERS Safety Report 21171199 (Version 1)
Quarter: 2022Q3

REPORT INFORMATION
  Report Type: Spontaneous
  Country: US (occurrence: US)
  Receive Date: 20220804
  Receipt Date: 20220804
  Transmission Date: 20221026
  Serious: No
  Sender: FDA-Public Use
  Company Number: US-BRISTOL-MYERS SQUIBB COMPANY-2022-051225

PATIENT
  Age: 76 Year
  Sex: Male
  Weight: 107.95 kg

DRUGS (1)
  1. POMALYST [Suspect]
     Active Substance: POMALIDOMIDE
     Indication: Plasma cell myeloma
     Dosage: FREQ: DAILY DAYS 1-21 EVERY 28 DAYS
     Route: 048
     Dates: start: 20220504

REACTIONS (8)
  - Fatigue [Unknown]
  - Dyspnoea [Unknown]
  - Constipation [Recovered/Resolved]
  - Anxiety [Unknown]
  - Swelling [Unknown]
  - Abdominal distension [Not Recovered/Not Resolved]
  - Rash [Recovered/Resolved]
  - Dry skin [Unknown]

NARRATIVE: CASE EVENT DATE: 20220504
